FAERS Safety Report 16331613 (Version 1)
Quarter: 2019Q2

REPORT INFORMATION
  Report Type: Spontaneous
  Country: CN (occurrence: CN)
  Receive Date: 20190520
  Receipt Date: 20190520
  Transmission Date: 20190711
  Serious: Yes (Other)
  Sender: FDA-Public Use
  Company Number: CN-BAYER-2019-093357

PATIENT
  Age: 82 Year
  Sex: Male
  Weight: 64 kg

DRUGS (2)
  1. AVELOX [Suspect]
     Active Substance: MOXIFLOXACIN HYDROCHLORIDE
     Indication: PNEUMONIA
     Dosage: 0.4 G, QD
     Route: 041
     Dates: start: 20190417, end: 20190423
  2. AVELOX [Suspect]
     Active Substance: MOXIFLOXACIN HYDROCHLORIDE
     Indication: ANTI-INFECTIVE THERAPY

REACTIONS (6)
  - Agitation [Recovered/Resolved]
  - Pyrexia [Recovered/Resolved]
  - Cognitive disorder [Recovered/Resolved]
  - Blood pressure systolic increased [Recovered/Resolved]
  - Tachypnoea [Recovered/Resolved]
  - Altered state of consciousness [Recovered/Resolved]

NARRATIVE: CASE EVENT DATE: 201904
